FAERS Safety Report 8124878-3 (Version None)
Quarter: 2012Q1

REPORT INFORMATION
  Report Type: 
  Country: None (occurrence: None)
  Receive Date: 20120209
  Receipt Date: 20120202
  Transmission Date: 20120608
  Serious: Yes (Hospitalization)
  Sender: FDA-Public Use
  Company Number: US-JNJFOC-20120202118

PATIENT
  Sex: Male
  Weight: 81.65 kg

DRUGS (2)
  1. ZYTIGA [Suspect]
     Indication: PROSTATE CANCER METASTATIC
     Route: 048
     Dates: start: 20110801
  2. PREDNISONE [Suspect]
     Indication: PROSTATE CANCER
     Route: 048
     Dates: start: 20110801

REACTIONS (4)
  - TYPE 2 DIABETES MELLITUS [None]
  - PRESYNCOPE [None]
  - DIABETES MELLITUS [None]
  - HYPOKALAEMIA [None]
